FAERS Safety Report 10300611 (Version 2)
Quarter: 2020Q1

REPORT INFORMATION
  Report Type: Report from Study
  Country: GB (occurrence: GB)
  Receive Date: 20140714
  Receipt Date: 20200331
  Transmission Date: 20200409
  Serious: Yes (Death, Other)
  Sender: FDA-Public Use
  Company Number: GB-ROCHE-1383309

PATIENT

DRUGS (6)
  1. CAPECITABINE. [Suspect]
     Active Substance: CAPECITABINE
     Indication: COLORECTAL CANCER METASTATIC
     Dosage: 1-14 REPEATED EVERY 3 WEEKS (REGIMEN TWO).
     Route: 048
  2. FLUOROURACIL. [Suspect]
     Active Substance: FLUOROURACIL
     Indication: COLORECTAL CANCER METASTATIC
     Route: 040
  3. CETUXIMAB. [Suspect]
     Active Substance: CETUXIMAB
     Indication: COLORECTAL CANCER METASTATIC
     Route: 042
  4. IRINOTECAN HYDROCHLORIDE. [Suspect]
     Active Substance: IRINOTECAN HYDROCHLORIDE
     Indication: COLORECTAL CANCER METASTATIC
     Route: 042
  5. OXALIPLATIN. [Suspect]
     Active Substance: OXALIPLATIN
     Indication: COLORECTAL CANCER METASTATIC
     Dosage: INTRAVENOUSLY OVER 2 H
     Route: 042
  6. FOLINIC ACID [Suspect]
     Active Substance: LEUCOVORIN
     Indication: COLORECTAL CANCER METASTATIC
     Dosage: L-FOLINIC ACID (175 MG FLAT DOSE ADMINISTERED INTRAVENOUSLY OVER 2 H) OR D,L-FOLINIC ACID (350 MG FL
     Route: 042

REACTIONS (37)
  - Cardiac arrest [Fatal]
  - Vomiting [Unknown]
  - Acute kidney injury [Unknown]
  - Hyperglycaemia [Unknown]
  - Stomatitis [Unknown]
  - Neutropenic sepsis [Unknown]
  - Acute coronary syndrome [Unknown]
  - Pyrexia [Unknown]
  - Angina pectoris [Unknown]
  - Abdominal infection [Unknown]
  - Embolism [Unknown]
  - Sepsis [Unknown]
  - Syncope [Unknown]
  - Fatigue [Unknown]
  - Neutropenia [Unknown]
  - Dehydration [Unknown]
  - Diarrhoea [Unknown]
  - Clostridium difficile infection [Unknown]
  - Hypokalaemia [Unknown]
  - Obstruction gastric [Unknown]
  - Myocardial infarction [Unknown]
  - Escherichia infection [Unknown]
  - Pulmonary embolism [Fatal]
  - Pneumonia [Fatal]
  - Tumour haemorrhage [Unknown]
  - Febrile neutropenia [Unknown]
  - Cerebrovascular accident [Unknown]
  - Interstitial lung disease [Fatal]
  - Cardiac failure [Fatal]
  - Hypomagnesaemia [Unknown]
  - Abdominal pain [Unknown]
  - Hypersensitivity [Unknown]
  - Pericarditis [Unknown]
  - Hepatic haemorrhage [Unknown]
  - Liver function test abnormal [Unknown]
  - Anaphylactic reaction [Unknown]
  - Biliary tract infection [Unknown]
